FAERS Safety Report 22734606 (Version 4)
Quarter: 2024Q3

REPORT INFORMATION
  Report Type: Spontaneous
  Country: IN (occurrence: IN)
  Receive Date: 20230721
  Receipt Date: 20240731
  Transmission Date: 20241016
  Serious: Yes (Other)
  Sender: ROCHE
  Company Number: IN-ROCHE-3390358

PATIENT
  Age: 49 Year
  Sex: Female

DRUGS (1)
  1. TECENTRIQ [Suspect]
     Active Substance: ATEZOLIZUMAB
     Indication: Ovarian cancer metastatic
     Route: 041
     Dates: start: 20230617

REACTIONS (3)
  - Disease progression [Unknown]
  - Off label use [Unknown]
  - Intentional product use issue [Unknown]
